FAERS Safety Report 9679051 (Version 3)
Quarter: 2013Q4

REPORT INFORMATION
  Report Type: Spontaneous
  Country: CN (occurrence: CN)
  Receive Date: 20131108
  Receipt Date: 20131211
  Transmission Date: 20140711
  Serious: Yes (Other)
  Sender: FDA-Public Use
  Company Number: CN-GILEAD-2013-0086935

PATIENT
  Age: 51 Year
  Sex: Male

DRUGS (2)
  1. HEPSERA [Suspect]
     Indication: HEPATITIS B
     Dosage: 1TAB PER DAY
     Route: 048
     Dates: start: 201202
  2. LAMIVUDINE [Concomitant]
     Indication: HEPATITIS B
     Dosage: 1 DF, QD
     Route: 048
     Dates: start: 201310, end: 201310

REACTIONS (3)
  - Hepatitis B DNA increased [Recovered/Resolved]
  - Hepatic function abnormal [Unknown]
  - Drug ineffective [Unknown]
